FAERS Safety Report 6603557-5 (Version None)
Quarter: 2010Q1

REPORT INFORMATION
  Report Type: 
  Country: None (occurrence: None)
  Receive Date: 20100226
  Receipt Date: 20091006
  Transmission Date: 20100710
  Serious: No
  Sender: FDA-Public Use
  Company Number: A0810571A

PATIENT
  Age: 79 Year
  Sex: Male

DRUGS (11)
  1. VALTREX [Suspect]
     Dosage: 1G THREE TIMES PER DAY
     Route: 048
     Dates: start: 20091002
  2. COREG [Concomitant]
  3. PROTONIX [Concomitant]
  4. ZOVIRAX [Concomitant]
  5. COQ-10 [Concomitant]
  6. ASPIRIN [Concomitant]
  7. FISH OIL [Concomitant]
  8. OSCAL [Concomitant]
  9. VITAMIN D3 [Concomitant]
  10. GARLIC [Concomitant]
  11. CENTRUM SILVER [Concomitant]

REACTIONS (1)
  - URINE OUTPUT DECREASED [None]
